FAERS Safety Report 9941465 (Version 1)
Quarter: 2014Q1

REPORT INFORMATION
  Report Type: Report from Study
  Country: US (occurrence: US)
  Receive Date: 20140303
  Receipt Date: 20140303
  Transmission Date: 20141002
  Serious: No
  Sender: FDA-Public Use
  Company Number: US-ABBVIE-13P-163-1039475-00

PATIENT
  Age: 38 Year
  Sex: Female

DRUGS (5)
  1. HUMIRA [Suspect]
     Indication: COLITIS ULCERATIVE
     Dates: start: 20121026
  2. AZATHIOPRINE [Concomitant]
     Indication: ULCER
  3. OTC ALLERGY MEDICATION CHLORTAB [Concomitant]
     Indication: HYPERSENSITIVITY
     Dosage: DAILY
  4. SINGULAIR [Concomitant]
     Indication: HYPERSENSITIVITY
     Dosage: DAILY
  5. DULERA [Concomitant]
     Indication: HYPERSENSITIVITY
     Dosage: INHALER, 2 PUFFS, TWICE DAILY

REACTIONS (4)
  - Chest pain [Not Recovered/Not Resolved]
  - Vomiting [Not Recovered/Not Resolved]
  - Pyrexia [Not Recovered/Not Resolved]
  - Inappropriate schedule of drug administration [Not Recovered/Not Resolved]
